FAERS Safety Report 17644912 (Version 1)
Quarter: 2020Q2

REPORT INFORMATION
  Report Type: Spontaneous
  Country: US (occurrence: US)
  Receive Date: 20200408
  Receipt Date: 20200408
  Transmission Date: 20200713
  Serious: Yes (Hospitalization)
  Sender: FDA-Public Use
  Company Number: None

PATIENT
  Sex: Female
  Weight: 65 kg

DRUGS (3)
  1. LENALIDOMIDE [Suspect]
     Active Substance: LENALIDOMIDE
     Dates: end: 20200224
  2. DEXAMETHASONE. [Suspect]
     Active Substance: DEXAMETHASONE
     Dates: end: 20190806
  3. BORTEZOMID [Suspect]
     Active Substance: BORTEZOMIB
     Dates: end: 20190805

REACTIONS (5)
  - Abdominal lymphadenopathy [None]
  - Colon cancer stage II [None]
  - Tumour ulceration [None]
  - Adenocarcinoma of colon [None]
  - Diverticulitis [None]

NARRATIVE: CASE EVENT DATE: 20200214
